FAERS Safety Report 9806028 (Version 3)
Quarter: 2014Q2

REPORT INFORMATION
  Report Type: Spontaneous
  Country: US (occurrence: US)
  Receive Date: 20140109
  Receipt Date: 20140515
  Transmission Date: 20141212
  Serious: Yes (Hospitalization, Other)
  Sender: FDA-Public Use
  Company Number: US-FRI-1000052593

PATIENT
  Age: 58 Year
  Sex: Female
  Weight: 58 kg

DRUGS (18)
  1. ARMOUR THYROID [Suspect]
     Indication: HYPOTHYROIDISM
     Dosage: 60 MG
     Route: 048
     Dates: start: 1995
  2. ARMOUR THYROID [Suspect]
     Indication: HYPOTHYROIDISM
     Dosage: 60 MG
     Route: 048
     Dates: end: 2014
  3. ARMOUR THYROID [Suspect]
     Dosage: 30 MG
     Dates: start: 2014, end: 2014
  4. ARMOUR THYROID [Suspect]
     Indication: HYPOTHYROIDISM
     Dosage: 45 MG
     Route: 048
     Dates: start: 2014, end: 2014
  5. ARMOUR THYROID [Suspect]
     Indication: HYPOTHYROIDISM
     Dosage: 60 MG
     Dates: start: 2014, end: 201404
  6. ARMOUR THYROID [Suspect]
     Dosage: 45 MG
     Route: 048
     Dates: start: 201404
  7. MIDODRINE [Suspect]
     Indication: SYNCOPE
     Dosage: 7.5 MG
     Route: 048
     Dates: start: 20131127, end: 20131211
  8. MIDODRINE [Suspect]
     Indication: SYNCOPE
     Dosage: 15 MG
     Route: 048
     Dates: start: 20131212, end: 201312
  9. STEROIDS NOS [Suspect]
     Indication: INFLUENZA
     Dates: start: 201401, end: 2014
  10. STEROIDS NOS [Suspect]
     Indication: SINUSITIS
  11. STEROIDS NOS [Suspect]
     Indication: BRONCHITIS
  12. METHYLCOBALAMIN [Concomitant]
     Indication: FIBROMYALGIA
  13. METHYLCOBALAMIN [Concomitant]
     Indication: FATIGUE
  14. METHYLCOBALAMIN [Concomitant]
     Indication: BLOOD HOMOCYSTEINE INCREASED
  15. TMG [Concomitant]
     Indication: DEPRESSION
  16. NOSE SPRAY NOS [Concomitant]
  17. VITAMINS NOS [Concomitant]
  18. NATURAL MEDICATIONS NOS [Concomitant]

REACTIONS (13)
  - Sinusitis [Recovered/Resolved]
  - Influenza [Recovered/Resolved]
  - Bronchitis [Recovered/Resolved]
  - Asthma [Recovering/Resolving]
  - Blood pressure decreased [Recovering/Resolving]
  - Autonomic neuropathy [Recovering/Resolving]
  - Ligament sprain [Recovered/Resolved]
  - Head injury [Recovered/Resolved]
  - Urinary tract infection [Recovering/Resolving]
  - Urinary tract injury [Unknown]
  - Aphonia [Recovered/Resolved]
  - Weight increased [Recovering/Resolving]
  - Intentional product misuse [Recovered/Resolved]
